FAERS Safety Report 5313146-0 (Version None)
Quarter: 2007Q2

REPORT INFORMATION
  Report Type: 
  Country: None (occurrence: None)
  Receive Date: 20070430
  Receipt Date: 20070423
  Transmission Date: 20071010
  Serious: Yes (Death, Other)
  Sender: FDA-Public Use
  Company Number: JP-PFIZER INC-2007032843

PATIENT
  Age: 30 Year
  Sex: Male

DRUGS (4)
  1. ZOLOFT [Suspect]
     Dosage: DAILY DOSE:50MG
     Route: 048
  2. ROHYPNOL [Concomitant]
  3. VEGETAMIN [Concomitant]
  4. DIAZEPAM [Concomitant]
     Route: 048

REACTIONS (3)
  - ALCOHOL POISONING [None]
  - HEPATIC FUNCTION ABNORMAL [None]
  - INSOMNIA [None]
